FAERS Safety Report 5365689-1 (Version None)
Quarter: 2007Q2

REPORT INFORMATION
  Report Type: 
  Country: None (occurrence: None)
  Receive Date: 20070621
  Receipt Date: 20070621
  Transmission Date: 20071010
  Serious: Yes (Death, Hospitalization, Other)
  Sender: FDA-Public Use
  Company Number: UA-BRISTOL-MYERS SQUIBB COMPANY-13219233

PATIENT
  Age: 56 Year
  Sex: Female

DRUGS (3)
  1. CISPLATIN [Suspect]
     Indication: GASTRIC CANCER
     Route: 042
     Dates: start: 20051115, end: 20051115
  2. CISPLATIN [Suspect]
     Route: 042
     Dates: start: 20051115, end: 20051115
  3. FLUOROURACIL [Suspect]
     Indication: GASTRIC CANCER
     Route: 042
     Dates: start: 20051120, end: 20051120

REACTIONS (3)
  - MALIGNANT NEOPLASM PROGRESSION [None]
  - NEPHRITIS [None]
  - NEUTROPENIA [None]
